FAERS Safety Report 9399842 (Version 1)
Quarter: 2013Q3

REPORT INFORMATION
  Report Type: Spontaneous
  Country: FR (occurrence: FR)
  Receive Date: 20130715
  Receipt Date: 20130715
  Transmission Date: 20140515
  Serious: Yes (Hospitalization)
  Sender: FDA-Public Use
  Company Number: PHHY2013FR073424

PATIENT
  Age: 34 Year
  Sex: Female

DRUGS (16)
  1. TRILEPTAL [Suspect]
     Dosage: 1200 MG, BID
     Route: 048
     Dates: end: 20130407
  2. TRILEPTAL [Suspect]
     Dosage: 1200 MG, BID
     Route: 048
     Dates: start: 20130410, end: 20130416
  3. TRILEPTAL [Suspect]
     Dosage: 600 MG, BID
     Route: 048
     Dates: start: 20130416
  4. EUPANTOL [Suspect]
     Indication: OESOPHAGEAL ULCER
     Dosage: UNK UKN, UNK
     Route: 042
     Dates: start: 20130408, end: 20130410
  5. EUPANTOL [Suspect]
     Dosage: 40 MG, QD
     Route: 048
     Dates: end: 20130416
  6. SABRIL [Suspect]
     Indication: EPILEPSY
     Dosage: 1000 MG, BID
     Dates: end: 20130407
  7. SABRIL [Suspect]
     Dosage: 1000 MG, BID
     Route: 048
     Dates: start: 20130410
  8. ZONEGRAN [Suspect]
     Dosage: 200 MG, BID
     Route: 048
     Dates: start: 2011, end: 20130407
  9. ZONEGRAN [Suspect]
     Dosage: 200 MG, BID
     Route: 048
     Dates: start: 20130410
  10. RIVOTRIL [Concomitant]
     Dosage: 2 MG, BID
     Dates: end: 20130407
  11. RIVOTRIL [Concomitant]
     Dosage: 2 MG, BID
     Dates: start: 20130410
  12. OMEPRAZOLE [Concomitant]
     Dosage: UNK UKN, UNK
  13. FLUISEDAL [Concomitant]
     Dosage: UNK UKN, UNK
  14. RHINOTROPHYL [Concomitant]
     Dosage: UNK UKN, UNK
  15. FLANID [Concomitant]
     Dosage: UNK UKN, UNK
  16. CEFUROXIME [Concomitant]
     Dosage: UNK UKN, UNK

REACTIONS (2)
  - Folate deficiency [Recovered/Resolved]
  - Pancytopenia [Recovered/Resolved]
